FAERS Safety Report 12764271 (Version 2)
Quarter: 2016Q4

REPORT INFORMATION
  Report Type: Spontaneous
  Country: US (occurrence: US)
  Receive Date: 20160920
  Receipt Date: 20161006
  Transmission Date: 20170207
  Serious: Yes (Other)
  Sender: FDA-Public Use
  Company Number: US-BAUSCH-BL-2016-020806

PATIENT
  Age: 39 Year
  Sex: Male
  Weight: 102.15 kg

DRUGS (9)
  1. XENAZINE [Suspect]
     Active Substance: TETRABENAZINE
     Route: 048
     Dates: start: 2016
  2. DEPAKOTE [Concomitant]
     Active Substance: DIVALPROEX SODIUM
     Indication: MOOD DISORDER DUE TO A GENERAL MEDICAL CONDITION
  3. XENAZINE [Suspect]
     Active Substance: TETRABENAZINE
     Indication: HUNTINGTON^S DISEASE
     Route: 048
     Dates: start: 20160824, end: 201608
  4. XENAZINE [Suspect]
     Active Substance: TETRABENAZINE
     Route: 048
     Dates: start: 20160831
  5. GABAPENTIN. [Concomitant]
     Active Substance: GABAPENTIN
     Indication: CERVICAL RADICULOPATHY
  6. DEPAKOTE [Concomitant]
     Active Substance: DIVALPROEX SODIUM
     Indication: EPILEPSY
  7. IBUPROFEN. [Concomitant]
     Active Substance: IBUPROFEN
     Indication: INFLAMMATION
  8. GABAPENTIN. [Concomitant]
     Active Substance: GABAPENTIN
     Dates: start: 2016
  9. COGENTIN [Concomitant]
     Active Substance: BENZTROPINE MESYLATE
     Indication: HUNTINGTON^S DISEASE
     Dates: end: 20160824

REACTIONS (9)
  - Hallucination, auditory [Unknown]
  - Skin odour abnormal [Recovered/Resolved]
  - Fatigue [Unknown]
  - Nausea [Recovered/Resolved]
  - Treatment noncompliance [Unknown]
  - Mania [Unknown]
  - Nightmare [Recovered/Resolved]
  - Abnormal dreams [Recovered/Resolved]
  - Night sweats [Recovered/Resolved]

NARRATIVE: CASE EVENT DATE: 2016
